FAERS Safety Report 25098986 (Version 1)
Quarter: 2025Q1

REPORT INFORMATION
  Report Type: Spontaneous
  Country: CO (occurrence: CO)
  Receive Date: 20250320
  Receipt Date: 20250320
  Transmission Date: 20250408
  Serious: Yes (Other)
  Sender: STRIDES
  Company Number: CO-STRIDES ARCOLAB LIMITED-2025SP003576

PATIENT
  Age: 31 Year
  Sex: Female

DRUGS (3)
  1. PREDNISOLONE [Suspect]
     Active Substance: PREDNISOLONE
     Indication: Pigment dispersion syndrome
     Route: 048
  2. FLUOROMETHOLONE [Concomitant]
     Active Substance: FLUOROMETHOLONE
     Indication: Pigment dispersion syndrome
     Route: 061
  3. Brimonidine/dorzolamide/timolol [Concomitant]
     Indication: Pigment dispersion syndrome
     Route: 061

REACTIONS (2)
  - Glaucomatous optic neuropathy [Unknown]
  - Drug ineffective for unapproved indication [Unknown]
